FAERS Safety Report 15028032 (Version 1)
Quarter: 2018Q2

REPORT INFORMATION
  Report Type: Report from Study
  Country: IL (occurrence: IL)
  Receive Date: 20180619
  Receipt Date: 20180619
  Transmission Date: 20180711
  Serious: Yes (Hospitalization)
  Sender: FDA-Public Use
  Company Number: IL-ACTELION-A-CH2018-173875

PATIENT
  Sex: Male

DRUGS (2)
  1. TADALAFIL [Concomitant]
     Active Substance: TADALAFIL
  2. OPSUMIT [Suspect]
     Active Substance: MACITENTAN
     Indication: PULMONARY HYPERTENSION
     Dosage: 10 MG, QD
     Route: 048
     Dates: start: 20180528, end: 20180605

REACTIONS (1)
  - Respiratory disorder [Unknown]

NARRATIVE: CASE EVENT DATE: 20180605
